FAERS Safety Report 22206502 (Version 1)
Quarter: 2023Q2

REPORT INFORMATION
  Report Type: Spontaneous
  Country: JP (occurrence: JP)
  Receive Date: 20230413
  Receipt Date: 20230413
  Transmission Date: 20230721
  Serious: Yes (Death, Other)
  Sender: FDA-Public Use
  Company Number: JP-GLAXOSMITHKLINE-JP2022JPN147487

PATIENT

DRUGS (1)
  1. DAPRODUSTAT [Suspect]
     Active Substance: DAPRODUSTAT
     Dosage: 4 MG
     Route: 048
     Dates: start: 20210924

REACTIONS (2)
  - Liver disorder [Fatal]
  - Hepatic failure [Fatal]

NARRATIVE: CASE EVENT DATE: 20210908
